FAERS Safety Report 9362711 (Version 1)
Quarter: 2013Q2

REPORT INFORMATION
  Report Type: Spontaneous
  Country: US (occurrence: US)
  Receive Date: 20130622
  Receipt Date: 20130622
  Transmission Date: 20140414
  Serious: No
  Sender: FDA-Public Use
  Company Number: US-US-EMD SERONO, INC.-7040485

PATIENT
  Age: 46 Year
  Sex: Female

DRUGS (2)
  1. REBIF [Suspect]
     Indication: PRODUCT USED FOR UNKNOWN INDICATION
     Route: 058
     Dates: start: 20100614
  2. REBIF [Suspect]
     Route: 058

REACTIONS (5)
  - Glucose tolerance impaired [Not Recovered/Not Resolved]
  - Malaise [Recovering/Resolving]
  - Red blood cell count decreased [Unknown]
  - Depression [Recovering/Resolving]
  - Influenza like illness [Recovering/Resolving]
